FAERS Safety Report 4879447-5 (Version None)
Quarter: 2005Q4

REPORT INFORMATION
  Report Type: 
  Country: None (occurrence: None)
  Receive Date: 20051209
  Receipt Date: 20051009
  Transmission Date: 20060501
  Serious: Yes (Death)
  Sender: FDA-Public Use
  Company Number: USA-2002-0001068

PATIENT
  Age: 21 Year
  Sex: Male
  Weight: 91.6 kg

DRUGS (5)
  1. OXYCONTIN [Suspect]
     Indication: PAIN
  2. HYDROCODONE BITARTRATE (SIMILAR OT IND 59,175) (HYDROCODONE BITARTRATE [Suspect]
  3. METHADONE HCL [Suspect]
  4. PROMETHAZINE [Suspect]
  5. CAFFEINE (CAFFEINE) [Suspect]

REACTIONS (2)
  - DYSARTHRIA [None]
  - MULTIPLE DRUG OVERDOSE ACCIDENTAL [None]
